FAERS Safety Report 22059297 (Version 1)
Quarter: 2023Q1

REPORT INFORMATION
  Report Type: Report from Study
  Country: US (occurrence: US)
  Receive Date: 20230303
  Receipt Date: 20230303
  Transmission Date: 20230417
  Serious: Yes (Other)
  Sender: FDA-Public Use
  Company Number: US-UCBSA-2023010335

PATIENT
  Sex: Female

DRUGS (1)
  1. BRIVARACETAM [Suspect]
     Active Substance: BRIVARACETAM
     Indication: Seizure
     Dosage: 200 MILLIGRAM, 2X/DAY (BID)

REACTIONS (2)
  - Cataract [Not Recovered/Not Resolved]
  - Fatigue [Not Recovered/Not Resolved]
